FAERS Safety Report 8173641-6 (Version None)
Quarter: 2012Q1

REPORT INFORMATION
  Report Type: 
  Country: None (occurrence: None)
  Receive Date: 20120224
  Receipt Date: 20120209
  Transmission Date: 20120608
  Serious: Yes (Death, Hospitalization)
  Sender: FDA-Public Use
  Company Number: 2012SGN00044

PATIENT
  Age: 44 Year
  Sex: Female

DRUGS (1)
  1. ADCETRIS [Suspect]
     Indication: ADULT T-CELL LYMPHOMA/LEUKAEMIA
     Dosage: 1.8 MG/KG
     Dates: start: 20120127, end: 20120127

REACTIONS (9)
  - DYSPHAGIA [None]
  - HEPATIC FAILURE [None]
  - GRAFT VERSUS HOST DISEASE IN INTESTINE [None]
  - LYMPHADENOPATHY [None]
  - DECREASED APPETITE [None]
  - DISEASE PROGRESSION [None]
  - NAUSEA [None]
  - HEPATOMEGALY [None]
  - DYSGEUSIA [None]
